FAERS Safety Report 15557754 (Version 1)
Quarter: 2018Q4

REPORT INFORMATION
  Report Type: Spontaneous
  Country: US (occurrence: US)
  Receive Date: 20181027
  Receipt Date: 20181027
  Transmission Date: 20190205
  Serious: Yes (Hospitalization, Other)
  Sender: FDA-Public Use
  Company Number: US-ROCHE-2205151

PATIENT
  Age: 71 Year
  Sex: Male

DRUGS (4)
  1. ESBRIET [Suspect]
     Active Substance: PIRFENIDONE
     Indication: CARDIAC DISORDER
     Dosage: ONGOING: UNKNOWN
     Route: 048
     Dates: start: 20171230
  2. BUTALBITAL [Concomitant]
     Active Substance: BUTALBITAL
  3. CAFFEINE. [Concomitant]
     Active Substance: CAFFEINE
  4. ACETAMINOPHEN. [Concomitant]
     Active Substance: ACETAMINOPHEN

REACTIONS (4)
  - Intentional product use issue [Unknown]
  - Diarrhoea [Unknown]
  - Off label use [Unknown]
  - Hypertension [Unknown]

NARRATIVE: CASE EVENT DATE: 20181016
